FAERS Safety Report 8833940 (Version 1)
Quarter: 2012Q4

REPORT INFORMATION
  Report Type: 
  Country: US (occurrence: US)
  Receive Date: 20121010
  Receipt Date: 20121010
  Transmission Date: 20130627
  Serious: Yes (Other)
  Sender: FDA-Public Use
  Company Number: CHPA2012US020835

PATIENT
  Age: 80 Year
  Sex: Male

DRUGS (1)
  1. NUPERCAINAL HEMORRHOIDAL/ANES OINTMENT [Suspect]
     Indication: HAEMORRHOIDS
     Dosage: Unk, ONCE OR TWICE A WEEK
     Route: 054

REACTIONS (4)
  - Colon cancer [Recovered/Resolved]
  - Hepatic mass [Recovered/Resolved]
  - Incorrect route of drug administration [Unknown]
  - Lymphoma [None]
